FAERS Safety Report 15107396 (Version 1)
Quarter: 2018Q3

REPORT INFORMATION
  Report Type: Report from Study
  Country: ES (occurrence: ES)
  Receive Date: 20180704
  Receipt Date: 20180704
  Transmission Date: 20181010
  Serious: Yes (Death, Hospitalization)
  Sender: FDA-Public Use
  Company Number: ES-PFIZER INC-2018263430

PATIENT
  Age: 55 Year
  Sex: Female

DRUGS (29)
  1. FENTANYL. [Suspect]
     Active Substance: FENTANYL
     Indication: BREAKTHROUGH PAIN
     Dosage: 400 UG, 2 IN THE MORNING AND 1 OR 2 IN THE EVENING/NIGHT
     Route: 045
     Dates: start: 2017
  2. MORPHINE SULFATE. [Suspect]
     Active Substance: MORPHINE SULFATE
     Dosage: MORE THAN 5 DOSES OF 20 MG PER DAY
     Route: 048
     Dates: start: 201711
  3. BROMAZEPAM [Concomitant]
     Active Substance: BROMAZEPAM
     Dosage: 1.5 MG/24 H
     Dates: start: 201711
  4. GRANISETRON [Concomitant]
     Active Substance: GRANISETRON
     Dosage: 1 MG, Q12H
     Dates: start: 201711
  5. MORPHINE SULFATE. [Suspect]
     Active Substance: MORPHINE SULFATE
     Dosage: 160 MG, Q12H
     Route: 048
     Dates: start: 201711, end: 201711
  6. MAGNESIUM HYDROXIDE. [Concomitant]
     Active Substance: MAGNESIUM HYDROXIDE
     Dosage: BETWEEN 1 AND 3 SACHETS PER DAY
     Dates: start: 201711
  7. CISPLATIN W/PEMETREXED [Suspect]
     Active Substance: CISPLATIN\PEMETREXED
     Indication: NON-SMALL CELL LUNG CANCER METASTATIC
     Dosage: UNK
     Dates: start: 201702, end: 2017
  8. PREGABALIN. [Concomitant]
     Active Substance: PREGABALIN
     Indication: PAIN MANAGEMENT
     Dosage: 300 MG, Q12H
     Dates: start: 201711
  9. OLANZAPINE. [Concomitant]
     Active Substance: OLANZAPINE
     Indication: PRURITUS
     Dosage: UNK
     Dates: start: 2017
  10. FENTANYL. [Suspect]
     Active Substance: FENTANYL
     Dosage: 150 UG, EVERY 72 H
     Dates: start: 201711
  11. FENTANYL. [Suspect]
     Active Substance: FENTANYL
     Dosage: UP TO 600 UG, RESCUES
     Route: 060
     Dates: start: 201711, end: 2017
  12. MORPHINE SULFATE. [Suspect]
     Active Substance: MORPHINE SULFATE
     Dosage: 260 MG, Q12H
     Route: 048
     Dates: start: 201711, end: 201711
  13. MORPHINE SULFATE. [Suspect]
     Active Substance: MORPHINE SULFATE
     Dosage: 5 MG, UNK
     Route: 048
     Dates: start: 2017, end: 2017
  14. ATEZOLIZUMAB. [Suspect]
     Active Substance: ATEZOLIZUMAB
     Indication: NON-SMALL CELL LUNG CANCER METASTATIC
     Dosage: UNK
     Dates: start: 2017
  15. IBUPROFEN. [Concomitant]
     Active Substance: IBUPROFEN
     Indication: PAIN
     Dosage: 600 MG, Q8H
     Dates: start: 201711
  16. DIPIRONE [Concomitant]
     Active Substance: METAMIZOLE SODIUM
     Dosage: 1.15 G, Q8H
     Dates: end: 201711
  17. MORPHINE SULFATE. [Suspect]
     Active Substance: MORPHINE SULFATE
     Indication: PAIN
     Dosage: 200 MG IN THE MORNING, 160 MG IN THE EVENING
     Route: 048
     Dates: start: 201711, end: 201711
  18. MORPHINE SULFATE. [Suspect]
     Active Substance: MORPHINE SULFATE
     Indication: BREAKTHROUGH PAIN
     Dosage: 300 MG, Q12H
     Route: 048
     Dates: start: 201711, end: 2017
  19. MORPHINE SULFATE. [Suspect]
     Active Substance: MORPHINE SULFATE
     Dosage: 30 MG, IF FENTANYL WAS INSUFFICIENT
     Route: 058
     Dates: start: 201711, end: 2017
  20. PEMBROLIZUMAB. [Suspect]
     Active Substance: PEMBROLIZUMAB
     Indication: NON-SMALL CELL LUNG CANCER METASTATIC
     Dosage: UNK
     Dates: start: 2017
  21. OMEPRAZOLE. [Concomitant]
     Active Substance: OMEPRAZOLE
     Dosage: 20 MG/24 H
     Dates: start: 201711
  22. FENTANYL. [Suspect]
     Active Substance: FENTANYL
     Indication: ANALGESIC THERAPY
     Dosage: 25 UG/H
     Dates: start: 201702, end: 2017
  23. FENTANYL. [Suspect]
     Active Substance: FENTANYL
     Indication: BREAKTHROUGH PAIN
     Dosage: 200 UG, RESCUE
     Route: 060
     Dates: start: 201702, end: 2017
  24. MORPHINE SULFATE. [Suspect]
     Active Substance: MORPHINE SULFATE
     Dosage: 200 MG, Q12H
     Route: 048
     Dates: start: 201711, end: 201711
  25. VINORELBINE [Suspect]
     Active Substance: VINORELBINE\VINORELBINE TARTRATE
     Indication: NON-SMALL CELL LUNG CANCER METASTATIC
     Dosage: UNK
     Dates: start: 201711
  26. CARBOPLATIN. [Suspect]
     Active Substance: CARBOPLATIN
     Indication: NON-SMALL CELL LUNG CANCER METASTATIC
     Dosage: UNK
     Dates: start: 201711
  27. FENTANYL. [Suspect]
     Active Substance: FENTANYL
     Dosage: 400 UG, PER DOSE
     Route: 045
     Dates: start: 201711, end: 2017
  28. MORPHINE SULFATE. [Suspect]
     Active Substance: MORPHINE SULFATE
     Dosage: CONTINUOUS INFUSION PUMP
     Route: 058
  29. MORPHINE SULFATE. [Suspect]
     Active Substance: MORPHINE SULFATE
     Dosage: 20 MG, EVERY 4 HOURS IF SHE PRESENTED BREAKTHROUGH PAIN
     Route: 048
     Dates: start: 201711

REACTIONS (9)
  - Constipation [Unknown]
  - Oedema [Unknown]
  - Skin plaque [Unknown]
  - Anxiety [Unknown]
  - Pneumonitis [Unknown]
  - Dry mouth [Unknown]
  - Insomnia [Unknown]
  - Nausea [Unknown]
  - Cognitive disorder [Unknown]

NARRATIVE: CASE EVENT DATE: 2017
